FAERS Safety Report 21546607 (Version 1)
Quarter: 2022Q4

REPORT INFORMATION
  Report Type: Spontaneous
  Country: CN (occurrence: CN)
  Receive Date: 20221103
  Receipt Date: 20221103
  Transmission Date: 20230113
  Serious: Yes (Other)
  Sender: FDA-Public Use
  Company Number: CN-SUN PHARMACEUTICAL INDUSTRIES LTD-2022R1-361758

PATIENT
  Age: 52 Year
  Sex: Female

DRUGS (2)
  1. CAPECITABINE [Suspect]
     Active Substance: CAPECITABINE
     Indication: Metastases to liver
     Dosage: 2500 MILLIGRAM/SQ. METER, EVERY 3 WEEKS
     Route: 065
     Dates: end: 202008
  2. NAVELBINE [Suspect]
     Active Substance: VINORELBINE TARTRATE
     Indication: Metastases to liver
     Dosage: 25 MILLIGRAM/SQ. METER, EVERY 3 WEEKS
     Route: 065
     Dates: end: 202008

REACTIONS (1)
  - Neoplasm progression [Unknown]
